FAERS Safety Report 11055957 (Version 1)
Quarter: 2015Q2

REPORT INFORMATION
  Report Type: Spontaneous
  Country: US (occurrence: US)
  Receive Date: 20150422
  Receipt Date: 20150422
  Transmission Date: 20150821
  Serious: No
  Sender: FDA-Public Use
  Company Number: US-TEVA-550211USA

PATIENT
  Sex: Male

DRUGS (1)
  1. ANAGRELIDE [Suspect]
     Active Substance: ANAGRELIDE
     Indication: ANTIPLATELET THERAPY
     Dosage: 9 PILLS/DAY: 5 IN A.M./4 IN P.M.
     Dates: start: 2010

REACTIONS (2)
  - Pruritus [Unknown]
  - Platelet count increased [Unknown]
